FAERS Safety Report 5395411-4 (Version None)
Quarter: 2007Q3

REPORT INFORMATION
  Report Type: 
  Country: None (occurrence: None)
  Receive Date: 20070724
  Receipt Date: 20070723
  Transmission Date: 20080115
  Serious: Yes (Death, Disabling, Other)
  Sender: FDA-Public Use
  Company Number: US-BRISTOL-MYERS SQUIBB COMPANY-13854104

PATIENT
  Age: 48 Year
  Sex: Male

DRUGS (3)
  1. CISPLATIN [Suspect]
     Indication: PANCREATIC CARCINOMA
  2. GEMCITABINE HCL [Suspect]
     Indication: PANCREATIC CARCINOMA
  3. HYPERBARIC OXYGEN [Concomitant]

REACTIONS (3)
  - AMPUTATION [None]
  - PNEUMONIA [None]
  - RAYNAUD'S PHENOMENON [None]
